FAERS Safety Report 15103497 (Version 1)
Quarter: 2018Q3

REPORT INFORMATION
  Report Type: Spontaneous
  Country: US (occurrence: US)
  Receive Date: 20180703
  Receipt Date: 20180703
  Transmission Date: 20181010
  Serious: No
  Sender: FDA-Public Use
  Company Number: US-NATCO PHARMA-2017NAT00073

PATIENT
  Age: 78 Year
  Sex: Female

DRUGS (6)
  1. AMLODIPINE [Concomitant]
     Active Substance: AMLODIPINE BESYLATE
     Dosage: 10 MG, 1X/DAY
     Route: 048
  2. ANASTROZOLE. [Suspect]
     Active Substance: ANASTROZOLE
     Indication: BREAST CANCER
     Dosage: 1 MG, 1X/DAY
     Route: 048
  3. HYDROCHLOROTHIAZIDE. [Concomitant]
     Active Substance: HYDROCHLOROTHIAZIDE
     Dosage: 25 MG, 1X/DAY
     Route: 048
  4. LISINOPRIL. [Concomitant]
     Active Substance: LISINOPRIL
     Dosage: 10 MG, 2X/DAY
     Route: 048
  5. DIETARY SUPPLEMENT [Concomitant]
     Active Substance: DIETARY SUPPLEMENT
     Dosage: 20 MEQ, 2X/DAY
     Route: 048
  6. LEVOTHYROXINE. [Concomitant]
     Active Substance: LEVOTHYROXINE
     Dosage: 25 ?G, 1X/DAY
     Route: 048

REACTIONS (7)
  - Mood altered [Recovering/Resolving]
  - Fatigue [Recovering/Resolving]
  - Palpitations [Recovering/Resolving]
  - Myalgia [Recovering/Resolving]
  - Hot flush [Recovering/Resolving]
  - Depression [Recovering/Resolving]
  - Muscular weakness [Recovering/Resolving]
